FAERS Safety Report 8615833-5 (Version None)
Quarter: 2012Q3

REPORT INFORMATION
  Report Type: 
  Country: None (occurrence: None)
  Receive Date: 20120823
  Receipt Date: 20120815
  Transmission Date: 20120928
  Serious: Yes (Other)
  Sender: FDA-Public Use
  Company Number: PHHY2012MX071368

PATIENT
  Sex: Female

DRUGS (6)
  1. ACETAMINOPHEN [Suspect]
  2. AMOXICILLIN [Suspect]
     Indication: UPPER RESPIRATORY TRACT INFECTION
  3. CEFTRIAXONE SODIUM [Suspect]
     Indication: UPPER RESPIRATORY TRACT INFECTION
  4. PENICILLIN [Suspect]
     Indication: UPPER RESPIRATORY TRACT INFECTION
  5. LORATADINE [Suspect]
     Indication: UPPER RESPIRATORY TRACT INFECTION
  6. NIMESULIDE [Suspect]
     Indication: UPPER RESPIRATORY TRACT INFECTION

REACTIONS (5)
  - DERMATITIS BULLOUS [None]
  - PRURITUS GENERALISED [None]
  - TOXIC EPIDERMAL NECROLYSIS [None]
  - EYELID OEDEMA [None]
  - GENERALISED ERYTHEMA [None]
